FAERS Safety Report 10993952 (Version 1)
Quarter: 2015Q2

REPORT INFORMATION
  Report Type: Spontaneous
  Country: US (occurrence: US)
  Receive Date: 20150407
  Receipt Date: 20150407
  Transmission Date: 20150821
  Serious: No
  Sender: FDA-Public Use
  Company Number: US-ASTRAZENECA-2007BM15434

PATIENT
  Age: 55 Year
  Sex: Female
  Weight: 85.7 kg

DRUGS (3)
  1. BYDUREON [Suspect]
     Active Substance: EXENATIDE
     Route: 058
     Dates: start: 2015
  2. BYETTA [Suspect]
     Active Substance: EXENATIDE
     Route: 058
  3. EXENATIDE PEN, DISPOSABLE DEVICE [Concomitant]
     Active Substance: EXENATIDE
     Dosage: 10MCG
     Route: 065

REACTIONS (3)
  - Injection site nodule [Unknown]
  - Incorrect dose administered [Unknown]
  - Increased appetite [Unknown]

NARRATIVE: CASE EVENT DATE: 2007
